FAERS Safety Report 12902336 (Version 2)
Quarter: 2016Q4

REPORT INFORMATION
  Report Type: Spontaneous
  Country: FR (occurrence: FR)
  Receive Date: 20161102
  Receipt Date: 20161205
  Transmission Date: 20170207
  Serious: Yes (Death)
  Sender: FDA-Public Use
  Company Number: FR-ROCHE-1848190

PATIENT
  Age: 83 Year
  Sex: Male

DRUGS (9)
  1. COVERSYL [Concomitant]
     Active Substance: PERINDOPRIL
     Route: 065
  2. XELODA [Suspect]
     Active Substance: CAPECITABINE
     Indication: PROSTATE CANCER METASTATIC
     Dosage: 500 MG AT THE DOSE OF 4 TABLETS IN THE MORNING AND THE EVENING
     Route: 065
     Dates: start: 20150527
  3. LANTUS [Concomitant]
     Active Substance: INSULIN GLARGINE
     Indication: TYPE 2 DIABETES MELLITUS
     Dosage: DOSE ADMINISTRATION IN THE MORNING
     Route: 065
  4. AUGMENTIN [Suspect]
     Active Substance: AMOXICILLIN\CLAVULANATE POTASSIUM
     Indication: BRONCHITIS
     Route: 065
     Dates: start: 20150402, end: 20150411
  5. GLUCOPHAGE [Concomitant]
     Active Substance: METFORMIN HYDROCHLORIDE
     Indication: TYPE 2 DIABETES MELLITUS
     Route: 065
  6. ZANIDIP [Concomitant]
     Active Substance: LERCANIDIPINE HYDROCHLORIDE
     Dosage: 1/2 DF?DOSE ADMINISTRATION IN THE MORNING
     Route: 065
  7. PARIET [Concomitant]
     Active Substance: RABEPRAZOLE SODIUM
  8. KARDEGIC [Concomitant]
     Active Substance: ASPIRIN LYSINE
  9. KESTIN [Concomitant]
     Active Substance: EBASTINE

REACTIONS (12)
  - Face oedema [Fatal]
  - Septic shock [Fatal]
  - Mucosal inflammation [Fatal]
  - Erythema [Fatal]
  - Pruritus generalised [Fatal]
  - Leukopenia [Fatal]
  - Rash [Fatal]
  - Swollen tongue [Fatal]
  - Thrombocytopenia [Fatal]
  - Bone marrow failure [Fatal]
  - Neutropenia [Fatal]
  - Dysphagia [Fatal]

NARRATIVE: CASE EVENT DATE: 20150604
